FAERS Safety Report 12716317 (Version 1)
Quarter: 2016Q3

REPORT INFORMATION
  Report Type: Report from Study
  Country: US (occurrence: US)
  Receive Date: 20160906
  Receipt Date: 20160906
  Transmission Date: 20161109
  Serious: Yes (Other)
  Sender: FDA-Public Use
  Company Number: US-ROCHE-1825832

PATIENT
  Age: 75 Year
  Sex: Male
  Weight: 64.1 kg

DRUGS (2)
  1. BEVACIZUMAB [Suspect]
     Active Substance: BEVACIZUMAB
     Indication: CLEAR CELL RENAL CELL CARCINOMA
     Dosage: DATE OF MOST RECENT DOSE: 20/APR/2013
     Route: 042
     Dates: start: 20130305
  2. IXABEPILONE [Suspect]
     Active Substance: IXABEPILONE
     Indication: CLEAR CELL RENAL CELL CARCINOMA
     Dosage: DATE OF MOST RECENT DOSE: 20/APR/2013
     Route: 042

REACTIONS (6)
  - Hypophosphataemia [Unknown]
  - Dyspnoea [Unknown]
  - Fatigue [Unknown]
  - Anaemia [Unknown]
  - Oesophageal haemorrhage [Unknown]
  - Hypoalbuminaemia [Unknown]
